FAERS Safety Report 23319016 (Version 2)
Quarter: 2024Q1

REPORT INFORMATION
  Report Type: Spontaneous
  Country: CN (occurrence: CN)
  Receive Date: 20231220
  Receipt Date: 20240102
  Transmission Date: 20240410
  Serious: Yes (Hospitalization, Other)
  Sender: FDA-Public Use
  Company Number: None

PATIENT
  Age: 57 Year
  Sex: Female

DRUGS (3)
  1. TACROLIMUS [Interacting]
     Active Substance: TACROLIMUS
     Indication: Product used for unknown indication
     Dosage: 2 MILLIGRAM, BID (EVERY 12 HOUR) 2 MG EVERY MORNING AND 2 MG EVERY EVENING
     Route: 065
  2. TACROLIMUS [Interacting]
     Active Substance: TACROLIMUS
     Dosage: 1.5 MILLIGRAM, OD (ONCE DAILY) RESTARTED DOSE
     Route: 065
  3. PAXLOVID [Interacting]
     Active Substance: NIRMATRELVIR\RITONAVIR
     Indication: COVID-19
     Dosage: UNK
     Route: 065

REACTIONS (13)
  - Abdominal distension [Unknown]
  - Palpitations [Unknown]
  - Drug interaction [Unknown]
  - Toxicity to various agents [Recovered/Resolved]
  - Abnormal dreams [Unknown]
  - Diarrhoea [Unknown]
  - Dizziness [Unknown]
  - Electrocardiogram QT prolonged [Unknown]
  - Headache [Unknown]
  - Nausea [Unknown]
  - Somnolence [Unknown]
  - Vomiting [Unknown]
  - Self-medication [Recovered/Resolved]
